FAERS Safety Report 12673003 (Version 1)
Quarter: 2016Q3

REPORT INFORMATION
  Report Type: Spontaneous
  Country: US (occurrence: US)
  Receive Date: 20160822
  Receipt Date: 20160822
  Transmission Date: 20161109
  Serious: No
  Sender: FDA-Public Use
  Company Number: US-BAUSCH-BL-2016-005604

PATIENT
  Sex: Male

DRUGS (1)
  1. CROMOLYN SODIUM NASAL SOLUTION USP [Suspect]
     Active Substance: CROMOLYN SODIUM
     Indication: NASAL CONGESTION
     Route: 045

REACTIONS (6)
  - Myalgia [Unknown]
  - Musculoskeletal pain [Unknown]
  - Neck pain [Unknown]
  - Muscular weakness [Unknown]
  - Insomnia [Unknown]
  - Back pain [Unknown]
